FAERS Safety Report 17646273 (Version 1)
Quarter: 2020Q2

REPORT INFORMATION
  Report Type: Spontaneous
  Country: US (occurrence: US)
  Receive Date: 20200408
  Receipt Date: 20200408
  Transmission Date: 20200713
  Serious: Yes (Life-Threatening, Hospitalization)
  Sender: FDA-Public Use
  Company Number: US-MYLANLABS-2020M1035291

PATIENT
  Age: 64 Year
  Sex: Female

DRUGS (2)
  1. AMLODIPINE [Suspect]
     Active Substance: AMLODIPINE BESYLATE
     Indication: PRODUCT USED FOR UNKNOWN INDICATION
     Dosage: THE WOMAN INGESTED UNSPECIFIED AMOUNT OF PILLS
     Route: 048
  2. LEVOTHYROXINE. [Suspect]
     Active Substance: LEVOTHYROXINE
     Indication: PRODUCT USED FOR UNKNOWN INDICATION
     Dosage: THE WOMAN INGESTED UNSPECIFIED AMOUNT OF PILLS
     Route: 048

REACTIONS (8)
  - Overdose [Recovering/Resolving]
  - Acute kidney injury [Unknown]
  - Metabolic acidosis [Unknown]
  - Liver injury [Unknown]
  - Shock [Recovering/Resolving]
  - Hypotension [Recovering/Resolving]
  - Toxicity to various agents [Recovering/Resolving]
  - Rhabdomyolysis [Unknown]
